FAERS Safety Report 7042815-X (Version None)
Quarter: 2010Q4

REPORT INFORMATION
  Report Type: 
  Country: None (occurrence: None)
  Receive Date: 20101013
  Receipt Date: 20091221
  Transmission Date: 20110411
  Serious: Yes (Hospitalization)
  Sender: FDA-Public Use
  Company Number: US-ASTRAZENECA-2009SE32987

PATIENT
  Age: 667 Month
  Sex: Female
  Weight: 71.7 kg

DRUGS (4)
  1. SYMBICORT [Suspect]
     Indication: BRONCHITIS
     Dosage: 80/4.5 MCG TWO PUFFS
     Route: 055
     Dates: start: 20091207, end: 20091207
  2. HYDROCHLOROTHIAZIDE [Concomitant]
  3. LISINOPRIL [Concomitant]
  4. ZITHROMAX [Concomitant]

REACTIONS (2)
  - BRONCHITIS [None]
  - CHEST PAIN [None]
